FAERS Safety Report 8048377-2 (Version None)
Quarter: 2011Q4

REPORT INFORMATION
  Report Type: 
  Country: None (occurrence: None)
  Receive Date: 20111209
  Receipt Date: 20111018
  Transmission Date: 20120403
  Serious: No
  Sender: FDA-Public Use
  Company Number: 2011SP049209

PATIENT
  Age: 60 Year
  Sex: Male
  Weight: 83.91 kg

DRUGS (3)
  1. RIBAVIRIN [Suspect]
     Indication: PRODUCT USED FOR UNKNOWN INDICATION
     Dosage: 600 MG; BID; PO
     Route: 048
     Dates: start: 20110628
  2. PEG-INTRON [Suspect]
     Indication: PRODUCT USED FOR UNKNOWN INDICATION
     Dosage: 150 MCG; QW; SC
     Route: 058
     Dates: start: 20110628
  3. VICTRELIS [Suspect]
     Indication: PRODUCT USED FOR UNKNOWN INDICATION
     Dosage: 800 MG; TID; PO
     Route: 048
     Dates: start: 20110726

REACTIONS (4)
  - NAUSEA [None]
  - FATIGUE [None]
  - DYSGEUSIA [None]
  - BREATH ODOUR [None]
